FAERS Safety Report 4444634-7 (Version None)
Quarter: 2004Q3

REPORT INFORMATION
  Report Type: 
  Country: None (occurrence: None)
  Receive Date: 20040902
  Receipt Date: 20040820
  Transmission Date: 20050211
  Serious: Yes (Other)
  Sender: FDA-Public Use
  Company Number: 2004058684

PATIENT
  Age: 54 Year
  Sex: Female
  Weight: 85.2762 kg

DRUGS (7)
  1. ZOLOFT [Suspect]
     Indication: DEPRESSION
     Dosage: 150 MG (1 IN 1 D), ORAL (SEE IMAGE)
     Route: 048
  2. NEURONTIN [Suspect]
     Indication: NEUROPATHY
     Dosage: UNK (1 IN 1 D); ORAL (SEE IMAGE)
     Route: 048
     Dates: start: 20040701, end: 20040801
  3. POTASSIUM CHLORIDE [Concomitant]
  4. LOSARTAN POTASSIUM [Concomitant]
  5. LANSOPRAZOLE [Concomitant]
  6. METOCLOPRAMIDE [Concomitant]
  7. ALBUTEROL [Concomitant]

REACTIONS (26)
  - ARRHYTHMIA [None]
  - CEREBROVASCULAR ACCIDENT [None]
  - CONDITION AGGRAVATED [None]
  - CRYING [None]
  - DEPRESSED MOOD [None]
  - DEPRESSION [None]
  - DIARRHOEA [None]
  - DISORIENTATION [None]
  - DIZZINESS [None]
  - FALL [None]
  - FEELING ABNORMAL [None]
  - FEELING DRUNK [None]
  - HOMICIDAL IDEATION [None]
  - HYPERTENSION [None]
  - HYPERVENTILATION [None]
  - KIDNEY INFECTION [None]
  - MULTIPLE SCLEROSIS [None]
  - NAUSEA [None]
  - NEUROPATHIC PAIN [None]
  - NEUROPATHY [None]
  - PAIN [None]
  - STUPOR [None]
  - SUICIDAL IDEATION [None]
  - THINKING ABNORMAL [None]
  - URINE ABNORMALITY [None]
  - VOMITING PROJECTILE [None]
